FAERS Safety Report 8252702-7 (Version None)
Quarter: 2012Q2

REPORT INFORMATION
  Report Type: 
  Country: None (occurrence: None)
  Receive Date: 20120402
  Receipt Date: 20111202
  Transmission Date: 20120825
  Serious: No
  Sender: FDA-Public Use
  Company Number: US-ABBOTT-11P-163-0880651-00

PATIENT
  Sex: Male
  Weight: 81.72 kg

DRUGS (10)
  1. FUROSEMIDE [Concomitant]
     Indication: PRODUCT USED FOR UNKNOWN INDICATION
  2. ASPIRIN [Concomitant]
     Indication: ANTICOAGULANT THERAPY
  3. ATENOLOL [Concomitant]
     Indication: PRODUCT USED FOR UNKNOWN INDICATION
  4. SIMVASTATIN [Concomitant]
     Indication: PRODUCT USED FOR UNKNOWN INDICATION
  5. LOSARTAN POTASSIUM [Concomitant]
     Indication: PRODUCT USED FOR UNKNOWN INDICATION
  6. ATELDIA [Concomitant]
     Indication: PRODUCT USED FOR UNKNOWN INDICATION
  7. LISINOPRIL [Concomitant]
     Indication: PRODUCT USED FOR UNKNOWN INDICATION
  8. KALOR-CON [Concomitant]
     Indication: PRODUCT USED FOR UNKNOWN INDICATION
  9. TAMSULOSIN HCL [Concomitant]
     Indication: PRODUCT USED FOR UNKNOWN INDICATION
  10. ANDROGEL [Suspect]
     Indication: BLOOD TESTOSTERONE DECREASED
     Route: 061
     Dates: start: 20111111, end: 20111130

REACTIONS (1)
  - CHEST DISCOMFORT [None]
